FAERS Safety Report 9917955 (Version 2)
Quarter: 2014Q1

REPORT INFORMATION
  Report Type: Spontaneous
  Country: BE (occurrence: BE)
  Receive Date: 20140222
  Receipt Date: 20140222
  Transmission Date: 20141002
  Serious: Yes (Hospitalization, Other)
  Sender: FDA-Public Use
  Company Number: BE-ROCHE-1350865

PATIENT
  Sex: Female

DRUGS (5)
  1. XOLAIR [Suspect]
     Indication: PRODUCT USED FOR UNKNOWN INDICATION
     Route: 065
  2. XANTHIUM [Concomitant]
  3. MONTELUKAST [Concomitant]
  4. INUVAIR [Concomitant]
  5. NASONEX [Concomitant]

REACTIONS (2)
  - Diverticulitis [Unknown]
  - Ovarian cancer [Unknown]
